FAERS Safety Report 5937250-9 (Version None)
Quarter: 2008Q4

REPORT INFORMATION
  Report Type: 
  Country: None (occurrence: None)
  Receive Date: 20081031
  Receipt Date: 20081021
  Transmission Date: 20090506
  Serious: Yes (Life-Threatening, Hospitalization)
  Sender: FDA-Public Use
  Company Number: FR-AMGEN-UK310727

PATIENT
  Sex: Female

DRUGS (3)
  1. NEULASTA [Suspect]
     Indication: CHEMOTHERAPY
     Route: 058
     Dates: start: 20080704, end: 20080704
  2. CARBOPLATIN [Concomitant]
  3. NAVELBINE [Concomitant]
     Route: 065

REACTIONS (2)
  - SHOCK HAEMORRHAGIC [None]
  - SPLENIC RUPTURE [None]
